FAERS Safety Report 11049318 (Version 1)
Quarter: 2015Q2

REPORT INFORMATION
  Report Type: Other
  Country: IT (occurrence: IT)
  Receive Date: 20150420
  Receipt Date: 20150420
  Transmission Date: 20150821
  Serious: Yes (Other)
  Sender: FDA-Public Use
  Company Number: IT-MYLANLABS-2015M1011578

PATIENT

DRUGS (1)
  1. AZITROMICINA MYLAN [Suspect]
     Active Substance: AZITHROMYCIN DIHYDRATE
     Indication: PHARYNGITIS
     Dosage: 500 MG DAILY
     Route: 048
     Dates: start: 20150404, end: 20150405

REACTIONS (3)
  - Urticaria [Recovering/Resolving]
  - Haematemesis [Recovering/Resolving]
  - Vertigo [Recovering/Resolving]

NARRATIVE: CASE EVENT DATE: 20150405
